FAERS Safety Report 10925728 (Version 1)
Quarter: 2015Q1

REPORT INFORMATION
  Report Type: Report from Study
  Country: PK (occurrence: PK)
  Receive Date: 20150318
  Receipt Date: 20150318
  Transmission Date: 20150721
  Serious: Yes (Hospitalization, Congenital Anomaly)
  Sender: FDA-Public Use
  Company Number: PK-SA-2015SA031687

PATIENT
  Age: 8 Day
  Sex: Female

DRUGS (2)
  1. LANTUS SOLOSTAR [Suspect]
     Active Substance: INSULIN GLARGINE
     Indication: MATERNAL EXPOSURE TIMING UNSPECIFIED
     Route: 064
     Dates: start: 201412
  2. SOLOSTAR [Concomitant]
     Active Substance: DEVICE
     Indication: MATERNAL EXPOSURE TIMING UNSPECIFIED
     Dates: start: 201412

REACTIONS (4)
  - Feeding disorder neonatal [Not Recovered/Not Resolved]
  - Aspiration [Unknown]
  - Cleft palate [Not Recovered/Not Resolved]
  - Foetal exposure during pregnancy [Unknown]

NARRATIVE: CASE EVENT DATE: 201503
